FAERS Safety Report 15053292 (Version 1)
Quarter: 2018Q2

REPORT INFORMATION
  Report Type: Spontaneous
  Country: IT (occurrence: IT)
  Receive Date: 20180622
  Receipt Date: 20180622
  Transmission Date: 20180711
  Serious: Yes (Other)
  Sender: FDA-Public Use
  Company Number: IT-ELI_LILLY_AND_COMPANY-IT201806005074

PATIENT
  Age: 68 Year
  Sex: Male
  Weight: 110 kg

DRUGS (1)
  1. DULAGLUTIDE. [Suspect]
     Active Substance: DULAGLUTIDE
     Indication: DIABETES MELLITUS
     Dosage: 1.5 MG, WEEKLY (1/W)
     Route: 058
     Dates: start: 20180507, end: 20180529

REACTIONS (6)
  - Diarrhoea [Recovered/Resolved with Sequelae]
  - Renal colic [Recovered/Resolved with Sequelae]
  - Nephrolithiasis [Recovered/Resolved with Sequelae]
  - Vomiting [Recovered/Resolved with Sequelae]
  - Dehydration [Recovered/Resolved with Sequelae]
  - Decreased appetite [Recovered/Resolved with Sequelae]

NARRATIVE: CASE EVENT DATE: 20180527
